FAERS Safety Report 25746641 (Version 1)
Quarter: 2025Q3

REPORT INFORMATION
  Report Type: Spontaneous
  Country: US (occurrence: US)
  Receive Date: 20250901
  Receipt Date: 20250901
  Transmission Date: 20251020
  Serious: No
  Sender: STALLERGENES
  Company Number: US-STALCOR-2025-AER-02330

PATIENT
  Age: 2 Year
  Sex: Male

DRUGS (1)
  1. PALFORZIA [Suspect]
     Active Substance: PEANUT
     Indication: Food allergy
     Dosage: REACTIVE DOSE AT LEVEL 2 AT 6MG, DISPENSED ON 03-JUL-2025
     Route: 048

REACTIONS (2)
  - Infection [Not Recovered/Not Resolved]
  - Product dose omission issue [Not Recovered/Not Resolved]

NARRATIVE: CASE EVENT DATE: 20250701
